FAERS Safety Report 22023318 (Version 2)
Quarter: 2023Q1

REPORT INFORMATION
  Report Type: Spontaneous
  Country: DE (occurrence: None)
  Receive Date: 20230223
  Receipt Date: 20230224
  Transmission Date: 20230418
  Serious: Yes (Other)
  Sender: FDA-Public Use
  Company Number: DE-ROCHE-3290831

PATIENT
  Age: 22 Year
  Sex: Female

DRUGS (7)
  1. RITUXIMAB [Suspect]
     Active Substance: RITUXIMAB
     Indication: Primary mediastinal large B-cell lymphoma
     Dosage: R-CHOP
     Route: 065
     Dates: start: 20220701, end: 20221001
  2. RITUXIMAB [Suspect]
     Active Substance: RITUXIMAB
     Dosage: R-GDP
     Route: 065
     Dates: start: 20221101, end: 20221201
  3. CYCLOPHOSPHAMIDE\DOXORUBICIN\PREDNISONE\VINCRISTINE [Suspect]
     Active Substance: CYCLOPHOSPHAMIDE\DOXORUBICIN\PREDNISONE\VINCRISTINE
     Indication: Primary mediastinal large B-cell lymphoma
     Dosage: R-CHOP
     Route: 065
     Dates: start: 20220701, end: 20221001
  4. GEMCITABINE [Suspect]
     Active Substance: GEMCITABINE
     Indication: Primary mediastinal large B-cell lymphoma
     Dosage: R-GDP
     Route: 065
     Dates: start: 20221101, end: 20221201
  5. DEXAMETHASONE [Suspect]
     Active Substance: DEXAMETHASONE
     Indication: Primary mediastinal large B-cell lymphoma
     Dosage: R-GDP
     Route: 065
     Dates: start: 20221101, end: 20221201
  6. CISPLATIN [Suspect]
     Active Substance: CISPLATIN
     Indication: Primary mediastinal large B-cell lymphoma
     Dosage: R-GDP
     Route: 065
     Dates: start: 20221101, end: 20221201
  7. GENETICALLY-MODIFIED AUTOLOGOUS T CELLS NOS [Suspect]
     Active Substance: GENETICALLY-MODIFIED AUTOLOGOUS T CELLS NOS
     Indication: Primary mediastinal large B-cell lymphoma
     Route: 065
     Dates: start: 20230101, end: 20230201

REACTIONS (2)
  - Off label use [Unknown]
  - Lymphoma [Not Recovered/Not Resolved]
